FAERS Safety Report 5858753-1 (Version None)
Quarter: 2008Q3

REPORT INFORMATION
  Report Type: 
  Country: None (occurrence: None)
  Receive Date: 20080826
  Receipt Date: 20080819
  Transmission Date: 20090109
  Serious: Yes (Other)
  Sender: FDA-Public Use
  Company Number: US-ASTRAZENECA-2008UW12381

PATIENT
  Sex: Female
  Weight: 57.2 kg

DRUGS (11)
  1. SEROQUEL XR [Suspect]
     Indication: BIPOLAR DISORDER
     Route: 048
  2. SEROQUEL XR [Suspect]
     Indication: SCHIZOPHRENIA
     Route: 048
  3. SEROQUEL XR [Suspect]
     Route: 048
     Dates: start: 20080606
  4. SEROQUEL XR [Suspect]
     Route: 048
     Dates: start: 20080606
  5. DEPO-PROVERA [Concomitant]
     Indication: CONTRACEPTION
     Dosage: EVERY 12 WEEKS
     Route: 030
  6. DONNATAL [Concomitant]
     Indication: ABDOMINAL PAIN UPPER
     Dosage: AS NEEDED
     Route: 048
     Dates: start: 20080104
  7. VALTREX [Concomitant]
     Indication: HERPES SIMPLEX
     Route: 048
     Dates: start: 20070101
  8. LOMOTIL [Concomitant]
  9. CLINDAMYCIN [Concomitant]
     Route: 048
  10. CLINDAMYCIN [Concomitant]
     Route: 048
  11. BACTROBAN [Concomitant]

REACTIONS (1)
  - BREAST DISCHARGE [None]
